FAERS Safety Report 7126196-9 (Version None)
Quarter: 2010Q4

REPORT INFORMATION
  Report Type: 
  Country: None (occurrence: None)
  Receive Date: 20101129
  Receipt Date: 20101117
  Transmission Date: 20110411
  Serious: Yes (Hospitalization)
  Sender: FDA-Public Use
  Company Number: BG-ASTRAZENECA-2010SE55121

PATIENT
  Age: 64 Year
  Sex: Female

DRUGS (5)
  1. SYMBICORT [Suspect]
     Indication: ASTHMA
     Dosage: 160/4.5 UG 1 INHALATION, TWICE DAILY
     Route: 055
     Dates: start: 20080101, end: 20100801
  2. TIOTROPIUM BROMIDE [Suspect]
     Indication: ASTHMA
     Dates: start: 20090101
  3. METHYLDOPA [Concomitant]
     Indication: HYPERTENSION
     Route: 048
  4. FUROSEMIDE [Concomitant]
  5. METFORMIN [Concomitant]

REACTIONS (1)
  - VOCAL CORD PARALYSIS [None]
